FAERS Safety Report 5487241-X (Version None)
Quarter: 2007Q3

REPORT INFORMATION
  Report Type: 
  Country: None (occurrence: None)
  Receive Date: 20070925
  Receipt Date: 20070718
  Transmission Date: 20080115
  Serious: No
  Sender: FDA-Public Use
  Company Number: 2007US001684

PATIENT
  Age: 70 Year
  Sex: Female

DRUGS (6)
  1. VESICARE [Suspect]
     Indication: DRUG INEFFECTIVE FOR UNAPPROVED INDICATION
     Dosage: 5 MG, UID/QD, ORAL; 5 MG, BID, ORAL
     Route: 048
     Dates: start: 20070515
  2. VESICARE [Suspect]
     Indication: DRUG INEFFECTIVE FOR UNAPPROVED INDICATION
     Dosage: 5 MG, UID/QD, ORAL; 5 MG, BID, ORAL
     Route: 048
     Dates: start: 20070701
  3. TYLENOL (CAPLET) [Concomitant]
  4. PREMARIN [Concomitant]
  5. GLUCOSAMINE (COD-LIVER OIL) [Concomitant]
  6. ONE A DAY PLUS IRON (FERROUS FUMARATE, VITAMINS NOS) [Concomitant]

REACTIONS (2)
  - DRUG INEFFECTIVE [None]
  - RASH [None]
